FAERS Safety Report 4953884-2 (Version None)
Quarter: 2006Q1

REPORT INFORMATION
  Report Type: 
  Country: None (occurrence: None)
  Receive Date: 20060327
  Receipt Date: 20060316
  Transmission Date: 20060701
  Serious: Yes (Hospitalization)
  Sender: FDA-Public Use
  Company Number: DE-JNJFOC-20060105725

PATIENT
  Sex: Female
  Weight: 55 kg

DRUGS (6)
  1. INFLIXIMAB [Suspect]
     Indication: RHEUMATOID ARTHRITIS
     Dosage: Q8-10W.  31 INFUSION IN TOTAL
     Route: 042
  2. BELOC-ZOK [Concomitant]
     Route: 065
  3. BELOC-ZOK [Concomitant]
     Indication: HYPERTENSION
     Route: 065
  4. METHOTREXATE [Concomitant]
     Indication: RHEUMATOID ARTHRITIS
     Route: 065
  5. CONCOR [Concomitant]
  6. PREDNISOLONE [Concomitant]

REACTIONS (2)
  - PULMONARY TUBERCULOSIS [None]
  - THERAPY NON-RESPONDER [None]
